FAERS Safety Report 6332717-6 (Version None)
Quarter: 2009Q3

REPORT INFORMATION
  Report Type: 
  Country: None (occurrence: None)
  Receive Date: 20090828
  Receipt Date: 20090819
  Transmission Date: 20100115
  Serious: Yes (Hospitalization)
  Sender: FDA-Public Use
  Company Number: CA-NOVOPROD-290738

PATIENT
  Sex: Male

DRUGS (2)
  1. NOVOLOG MIX 70/30 [Suspect]
     Indication: TYPE 2 DIABETES MELLITUS
     Dosage: 38 UNK, BID
     Dates: end: 20090820
  2. RASILEZ [Concomitant]
     Dosage: 150 MG, UNK
     Dates: end: 20090819

REACTIONS (5)
  - BLOOD GLUCOSE INCREASED [None]
  - DISORIENTATION [None]
  - DIZZINESS [None]
  - DRUG DOSE OMISSION [None]
  - HYPOTENSION [None]
